FAERS Safety Report 7725502-1 (Version None)
Quarter: 2011Q3

REPORT INFORMATION
  Report Type: 
  Country: None (occurrence: None)
  Receive Date: 20110902
  Receipt Date: 20110614
  Transmission Date: 20111222
  Serious: No
  Sender: FDA-Public Use
  Company Number: US-BRISTOL-MYERS SQUIBB COMPANY-15810427

PATIENT

DRUGS (3)
  1. METFORMIN HCL [Suspect]
  2. ONGLYZA [Suspect]
  3. KOMBIGLYZE XR [Suspect]

REACTIONS (1)
  - GASTROINTESTINAL DISORDER [None]
